FAERS Safety Report 19415702 (Version 3)
Quarter: 2021Q3

REPORT INFORMATION
  Report Type: Spontaneous
  Country: US (occurrence: US)
  Receive Date: 20210614
  Receipt Date: 20210720
  Transmission Date: 20211014
  Serious: Yes (Hospitalization, Other)
  Sender: FDA-Public Use
  Company Number: US-PHARMING-PHAUS2021000289

PATIENT

DRUGS (2)
  1. RUCONEST [Suspect]
     Active Substance: HUMAN C1-ESTERASE INHIBITOR
     Indication: HEREDITARY ANGIOEDEMA
     Dosage: 4200 IU, EVERY OTHER DAY AND AS NEEDED
     Route: 042
     Dates: start: 20180823
  2. RUCONEST [Suspect]
     Active Substance: HUMAN C1-ESTERASE INHIBITOR
     Dosage: 4200 IU, EVERY OTHER DAY AND AS NEEDED
     Route: 042
     Dates: start: 20180823

REACTIONS (2)
  - Intentional product use issue [Unknown]
  - COVID-19 [Unknown]
